FAERS Safety Report 5649887-5 (Version None)
Quarter: 2008Q1

REPORT INFORMATION
  Report Type: 
  Country: None (occurrence: None)
  Receive Date: 20080304
  Receipt Date: 20080221
  Transmission Date: 20080703
  Serious: Yes (Hospitalization, Other)
  Sender: FDA-Public Use
  Company Number: FR-ELI_LILLY_AND_COMPANY-FR200802005149

PATIENT
  Sex: Male

DRUGS (6)
  1. PROZAC [Suspect]
     Dosage: 20 MG, DAILY (1/D)
     Route: 048
  2. SOLIAN /FRA/ [Concomitant]
     Dosage: 100 MG, 3/D
     Route: 048
  3. TEMESTA [Concomitant]
     Dosage: 1 MG, 2/D
     Route: 048
  4. TERCIAN [Concomitant]
     Dosage: 12.5 MG, DAILY (1/D)
     Route: 048
  5. ARTANE [Concomitant]
     Dosage: 5 MG, 2/D
     Route: 048
  6. MEPRONIZINE [Concomitant]
     Dosage: 2 D/F, DAILY (1/D)
     Route: 048

REACTIONS (8)
  - ASTHENIA [None]
  - FALL [None]
  - GASTROINTESTINAL DISORDER [None]
  - INJURY [None]
  - MALAISE [None]
  - OEDEMA PERIPHERAL [None]
  - PANCYTOPENIA [None]
  - VITAMIN B12 DEFICIENCY [None]
